FAERS Safety Report 17676005 (Version 1)
Quarter: 2020Q2

REPORT INFORMATION
  Report Type: Spontaneous
  Country: US (occurrence: US)
  Receive Date: 20200416
  Receipt Date: 20200416
  Transmission Date: 20200714
  Serious: Yes (Hospitalization, Other)
  Sender: FDA-Public Use
  Company Number: US-HIKMA PHARMACEUTICALS USA INC.-US-H14001-20-51099

PATIENT
  Age: 36 Year
  Sex: Female

DRUGS (4)
  1. HEPARIN [Suspect]
     Active Substance: HEPARIN SODIUM
     Indication: CORONARY ARTERY DISSECTION
     Route: 041
  2. NITROGLYCERIN. [Suspect]
     Active Substance: NITROGLYCERIN
     Indication: CORONARY ARTERY DISSECTION
     Route: 041
  3. PROGESTERONE. [Suspect]
     Active Substance: PROGESTERONE
     Indication: CONTRACEPTION
     Dosage: LOW-DOSE PROGESTERONE INTRAUTERINE DEVICE ()
     Route: 065
  4. PROGESTERONE. [Suspect]
     Active Substance: PROGESTERONE
     Indication: CONTRACEPTION
     Dosage: ESTROGEN-PROGESTERONE PATCH ()

REACTIONS (3)
  - Disease progression [Recovering/Resolving]
  - Coronary artery dissection [Recovering/Resolving]
  - Arterial intramural haematoma [Recovering/Resolving]
